FAERS Safety Report 8235945-8 (Version None)
Quarter: 2012Q1

REPORT INFORMATION
  Report Type: 
  Country: None (occurrence: None)
  Receive Date: 20120326
  Receipt Date: 20120316
  Transmission Date: 20120608
  Serious: Yes (Congenital Anomaly, Other)
  Sender: FDA-Public Use
  Company Number: JP-MERCK-1203USA02505B1

PATIENT
  Age: 1 Day
  Weight: 2 kg

DRUGS (1)
  1. PEPCID [Suspect]
     Route: 064

REACTIONS (1)
  - NEONATAL ASPHYXIA [None]
